FAERS Safety Report 9362910 (Version 1)
Quarter: 2013Q2

REPORT INFORMATION
  Report Type: Report from Study
  Country: CN (occurrence: CN)
  Receive Date: 20130624
  Receipt Date: 20130624
  Transmission Date: 20140414
  Serious: Yes (Other)
  Sender: FDA-Public Use
  Company Number: CN-ROCHE-1239854

PATIENT
  Sex: Male
  Weight: 65 kg

DRUGS (5)
  1. CELLCEPT [Suspect]
     Indication: RENAL TRANSPLANT
     Route: 048
     Dates: start: 20080222
  2. CICLOSPORIN A [Concomitant]
     Indication: RENAL TRANSPLANT
     Route: 048
     Dates: start: 20080222
  3. METHYLPREDNISOLONE [Concomitant]
     Indication: RENAL TRANSPLANT
     Route: 048
     Dates: start: 20080222
  4. INSULIN [Concomitant]
     Indication: DIABETES MELLITUS
  5. HYPOTENSOR [Concomitant]

REACTIONS (2)
  - Cerebral thrombosis [Unknown]
  - Gait disturbance [Unknown]
